FAERS Safety Report 7530453-1 (Version None)
Quarter: 2011Q2

REPORT INFORMATION
  Report Type: 
  Country: None (occurrence: None)
  Receive Date: 20110607
  Receipt Date: 20110526
  Transmission Date: 20111010
  Serious: Yes (Hospitalization)
  Sender: FDA-Public Use
  Company Number: SG-BAYER-2011-046067

PATIENT
  Age: 85 Year
  Sex: Female

DRUGS (3)
  1. CIPROFLOXACIN HCL [Suspect]
  2. CEFTRIAXONE [Suspect]
  3. METRONIDAZOLE [Suspect]

REACTIONS (1)
  - RASH MACULO-PAPULAR [None]
